FAERS Safety Report 7730464-7 (Version None)
Quarter: 2011Q3

REPORT INFORMATION
  Report Type: 
  Country: None (occurrence: None)
  Receive Date: 20110825
  Receipt Date: 20110810
  Transmission Date: 20111222
  Serious: Yes (Other)
  Sender: FDA-Public Use
  Company Number: US-IGSA-IG902

PATIENT
  Age: 66 Year
  Sex: Female

DRUGS (1)
  1. FLEBOGAMMA DIF [Suspect]
     Indication: DEMYELINATING POLYNEUROPATHY
     Dosage: UNK DOSE EVERY 3-4 MONTH
     Dates: start: 20110711, end: 20110711

REACTIONS (5)
  - HYPOAESTHESIA [None]
  - ASTHENIA [None]
  - CEREBROVASCULAR ACCIDENT [None]
  - AREFLEXIA [None]
  - PARAESTHESIA [None]
